FAERS Safety Report 9285827 (Version 1)
Quarter: 2013Q2

REPORT INFORMATION
  Report Type: Spontaneous
  Country: DE (occurrence: DE)
  Receive Date: 20130513
  Receipt Date: 20130513
  Transmission Date: 20140414
  Serious: Yes (Life-Threatening)
  Sender: FDA-Public Use
  Company Number: DE-PFIZER INC-2013142013

PATIENT
  Age: 47 Year
  Sex: Female
  Weight: 60 kg

DRUGS (3)
  1. SUMATRIPTAN SUCCINATE [Suspect]
     Dosage: 100 MG, 1X/DAY
     Route: 048
     Dates: start: 20130401, end: 20130401
  2. ASS [Concomitant]
     Indication: HEADACHE
     Dosage: 500 MG, UNK
     Route: 048
  3. IBUFLAM [Concomitant]
     Indication: HEADACHE
     Dosage: 600 MG, UNK
     Route: 048

REACTIONS (5)
  - Cardioversion [Recovering/Resolving]
  - Cyanosis [Recovering/Resolving]
  - Loss of consciousness [Recovering/Resolving]
  - Ventricular fibrillation [Recovering/Resolving]
  - Cardiopulmonary failure [Recovering/Resolving]
